FAERS Safety Report 4393063-3 (Version None)
Quarter: 2004Q3

REPORT INFORMATION
  Report Type: 
  Country: None (occurrence: None)
  Receive Date: 20040708
  Receipt Date: 20040625
  Transmission Date: 20050211
  Serious: Yes (Hospitalization)
  Sender: FDA-Public Use
  Company Number: PHEH2004US06924

PATIENT
  Age: 74 Year
  Sex: Female
  Weight: 61 kg

DRUGS (8)
  1. EXELON [Suspect]
     Indication: DEMENTIA ALZHEIMER'S TYPE
     Dosage: 1.5 MG, UNK
     Route: 048
     Dates: start: 20040201
  2. RYTHMOL [Concomitant]
     Indication: HEART RATE IRREGULAR
  3. SYNTHROID [Concomitant]
     Indication: HYPOTHYROIDISM
  4. MULTI-VITAMINS [Concomitant]
  5. VITAMIN C [Concomitant]
  6. LASIX [Concomitant]
  7. RISPERDAL [Concomitant]
     Dates: end: 20040601
  8. HALDOL [Concomitant]
     Dates: end: 20040601

REACTIONS (12)
  - ABDOMINAL PAIN UPPER [None]
  - ABSCESS [None]
  - ANOREXIA [None]
  - APPENDICECTOMY [None]
  - APPENDICITIS PERFORATED [None]
  - ASTHENIA [None]
  - CONFUSIONAL STATE [None]
  - DYSPHAGIA [None]
  - INCISION SITE COMPLICATION [None]
  - OXYGEN SATURATION DECREASED [None]
  - VENTRICULAR TACHYCARDIA [None]
  - WHITE BLOOD CELL COUNT INCREASED [None]
